FAERS Safety Report 13676842 (Version 2)
Quarter: 2017Q2

REPORT INFORMATION
  Report Type: Spontaneous
  Country: US (occurrence: US)
  Receive Date: 20170622
  Receipt Date: 20170627
  Transmission Date: 20170830
  Serious: No
  Sender: FDA-Public Use
  Company Number: US-BAYER-2017-108256

PATIENT
  Age: 2 Year
  Sex: Female
  Weight: 15 kg

DRUGS (2)
  1. MIRALAX [Suspect]
     Active Substance: POLYETHYLENE GLYCOL 3350
     Indication: CONSTIPATION
     Dosage: 0.25 DF, QD
     Route: 048
     Dates: start: 201701
  2. MIRALAX [Suspect]
     Active Substance: POLYETHYLENE GLYCOL 3350
     Indication: CONSTIPATION
     Dosage: 0.5 DF, QOD

REACTIONS (4)
  - Faeces soft [Unknown]
  - Rash [Unknown]
  - Incorrect dose administered [Unknown]
  - Skin disorder [Unknown]

NARRATIVE: CASE EVENT DATE: 201704
